FAERS Safety Report 19549406 (Version 1)
Quarter: 2021Q3

REPORT INFORMATION
  Report Type: Spontaneous
  Country: US (occurrence: US)
  Receive Date: 20210715
  Receipt Date: 20210715
  Transmission Date: 20211014
  Serious: Yes (Hospitalization)
  Sender: FDA-Public Use
  Company Number: None

PATIENT
  Age: 62 Year
  Sex: Female

DRUGS (1)
  1. DALFAMPRIDINE. [Suspect]
     Active Substance: DALFAMPRIDINE
     Indication: MULTIPLE SCLEROSIS
     Route: 048
     Dates: start: 20210315

REACTIONS (5)
  - Balance disorder [None]
  - Movement disorder [None]
  - Spinal disorder [None]
  - Back pain [None]
  - Bladder disorder [None]

NARRATIVE: CASE EVENT DATE: 20210630
